FAERS Safety Report 6019512-2 (Version None)
Quarter: 2008Q4

REPORT INFORMATION
  Report Type: 
  Country: None (occurrence: None)
  Receive Date: 20081224
  Receipt Date: 20081216
  Transmission Date: 20090506
  Serious: Yes (Death, Hospitalization)
  Sender: FDA-Public Use
  Company Number: NL-SANOFI-SYNTHELABO-F01200800309

PATIENT
  Sex: Male

DRUGS (7)
  1. FOSINOPRIL SODIUM [Concomitant]
     Dosage: UNK
  2. SELEKTINE [Concomitant]
     Dosage: UNK
  3. ASCAL [Suspect]
     Dosage: UNK
  4. CETUXIMAB [Suspect]
     Dosage: 400 MG/M2 IV D1C1, THEN 250 MG/M2 1/WEEK
     Route: 042
     Dates: start: 20061117, end: 20061117
  5. BEVACIZUMAB [Suspect]
     Route: 042
     Dates: start: 20061110, end: 20061110
  6. CAPECITABINE [Suspect]
     Dosage: 1000 MG/M2 ORALLY BID, D1-D14 4000 MG
     Route: 048
     Dates: start: 20061110, end: 20061119
  7. OXALIPLATIN [Suspect]
     Indication: COLORECTAL CANCER
     Route: 041
     Dates: start: 20061110, end: 20061110

REACTIONS (7)
  - DEATH [None]
  - DIARRHOEA [None]
  - HAEMOTHORAX [None]
  - METABOLIC ACIDOSIS [None]
  - PNEUMOTHORAX [None]
  - PULMONARY EMBOLISM [None]
  - RENAL FAILURE [None]
